FAERS Safety Report 6885073-9 (Version None)
Quarter: 2010Q3

REPORT INFORMATION
  Report Type: 
  Country: None (occurrence: None)
  Receive Date: 20100729
  Receipt Date: 20071112
  Transmission Date: 20110219
  Serious: No
  Sender: FDA-Public Use
  Company Number: US-PFIZER INC-2007095822

PATIENT
  Sex: Female

DRUGS (3)
  1. CELEBREX [Suspect]
  2. ACCUPRIL [Concomitant]
  3. CARDIZEM [Concomitant]

REACTIONS (1)
  - BLOOD PRESSURE INCREASED [None]
